FAERS Safety Report 17298825 (Version 1)
Quarter: 2020Q1

REPORT INFORMATION
  Report Type: Spontaneous
  Country: US (occurrence: US)
  Receive Date: 20200103
  Receipt Date: 20200103
  Transmission Date: 20200409
  Serious: Yes (Other)
  Sender: FDA-Public Use
  Company Number: None

PATIENT
  Sex: Male

DRUGS (15)
  1. MIDODRINE [Concomitant]
     Active Substance: MIDODRINE
  2. ALPRAZOLAM. [Concomitant]
     Active Substance: ALPRAZOLAM
  3. METOPROLOL TARTRATE. [Concomitant]
     Active Substance: METOPROLOL TARTRATE
  4. NYSTOP [Concomitant]
     Active Substance: NYSTATIN
  5. LOPERAMIDE [Concomitant]
     Active Substance: LOPERAMIDE
  6. HYDRALAZINE [Concomitant]
     Active Substance: HYDRALAZINE HYDROCHLORIDE
  7. PAROXETINE. [Concomitant]
     Active Substance: PAROXETINE
  8. HUMIRA [Suspect]
     Active Substance: ADALIMUMAB
     Indication: CROHN^S DISEASE
     Dosage: ?          OTHER FREQUENCY:DAY 1;?
     Route: 058
     Dates: start: 20191231
  9. ATROVASTATIN [Concomitant]
     Active Substance: ATORVASTATIN CALCIUM
  10. PREDNISONE. [Concomitant]
     Active Substance: PREDNISONE
  11. ESCITALOPRAM [Concomitant]
     Active Substance: ESCITALOPRAM OXALATE
  12. HUMIRA [Suspect]
     Active Substance: ADALIMUMAB
     Dosage: ?          OTHER FREQUENCY:DAY 15;?
     Route: 058
     Dates: start: 20200102
  13. POT CHLORIDE [Concomitant]
     Active Substance: POTASSIUM CHLORIDE
  14. DIGOXIN. [Concomitant]
     Active Substance: DIGOXIN
  15. METRONIDAZOLE. [Concomitant]
     Active Substance: METRONIDAZOLE

REACTIONS (1)
  - Neoplasm malignant [None]
